FAERS Safety Report 6394808-3 (Version None)
Quarter: 2009Q4

REPORT INFORMATION
  Report Type: 
  Country: None (occurrence: None)
  Receive Date: 20091009
  Receipt Date: 20090921
  Transmission Date: 20100525
  Serious: Yes (Other)
  Sender: FDA-Public Use
  Company Number: PHHY2009IT40979

PATIENT
  Age: 73 Year
  Sex: Female

DRUGS (1)
  1. ZOLEDRONIC ACID [Suspect]
     Indication: BREAST CANCER
     Dosage: UNK
     Route: 042
     Dates: start: 20011101

REACTIONS (16)
  - BONE DEBRIDEMENT [None]
  - BONE DISORDER [None]
  - BONE LESION EXCISION [None]
  - FISTULA REPAIR [None]
  - GINGIVAL SWELLING [None]
  - IMPLANT SITE INFLAMMATION [None]
  - JAW OPERATION [None]
  - ORAL CAVITY FISTULA [None]
  - ORAL INFECTION [None]
  - OSTEOLYSIS [None]
  - OSTEONECROSIS [None]
  - PAIN IN JAW [None]
  - PARAESTHESIA ORAL [None]
  - PYREXIA [None]
  - SECONDARY SEQUESTRUM [None]
  - SWELLING FACE [None]
